FAERS Safety Report 7628284-7 (Version None)
Quarter: 2011Q3

REPORT INFORMATION
  Report Type: 
  Country: None (occurrence: None)
  Receive Date: 20110722
  Receipt Date: 20110714
  Transmission Date: 20111222
  Serious: Yes (Hospitalization)
  Sender: FDA-Public Use
  Company Number: DE-JNJFOC-20110611151

PATIENT
  Sex: Male

DRUGS (5)
  1. HALDOL [Suspect]
     Route: 048
     Dates: start: 20100505, end: 20100505
  2. DIAZEPAM [Concomitant]
     Indication: DELIRIUM
     Route: 048
     Dates: start: 20100303, end: 20100505
  3. DIAZEPAM [Concomitant]
     Route: 048
     Dates: start: 20100506
  4. NEXIUM [Concomitant]
     Route: 048
     Dates: start: 20100506
  5. HALDOL [Suspect]
     Indication: DELIRIUM
     Route: 048
     Dates: start: 20100506, end: 20100506

REACTIONS (2)
  - NEUROLEPTIC MALIGNANT SYNDROME [None]
  - RESPIRATORY FAILURE [None]
